FAERS Safety Report 5012766-0 (Version None)
Quarter: 2006Q2

REPORT INFORMATION
  Report Type: 
  Country: None (occurrence: None)
  Receive Date: 20060530
  Receipt Date: 20060209
  Transmission Date: 20061013
  Serious: Yes (Hospitalization)
  Sender: FDA-Public Use
  Company Number: US-BRISTOL-MYERS SQUIBB COMPANY-13277058

PATIENT
  Age: 78 Year
  Sex: Female

DRUGS (7)
  1. ERBITUX [Suspect]
     Indication: TONGUE NEOPLASM MALIGNANT STAGE UNSPECIFIED
     Dosage: OFF CETUXIMAB FOR PAST 3 WEEKS.
     Route: 042
     Dates: start: 20060120, end: 20060120
  2. BENADRYL [Concomitant]
     Indication: PREMEDICATION
     Route: 042
  3. CISPLATIN [Concomitant]
  4. DECADRON SRC [Concomitant]
  5. EMEND [Concomitant]
  6. RADIATION THERAPY [Concomitant]
  7. ZOFRAN [Concomitant]

REACTIONS (3)
  - ERYTHEMA [None]
  - INFECTION [None]
  - PRURITUS [None]
